FAERS Safety Report 5165306-X (Version None)
Quarter: 2006Q4

REPORT INFORMATION
  Report Type: 
  Country: None (occurrence: None)
  Receive Date: 20061124
  Receipt Date: 20061115
  Transmission Date: 20070319
  Serious: Yes (Other)
  Sender: FDA-Public Use
  Company Number: 2006143132

PATIENT
  Age: 54 Year
  Sex: Female

DRUGS (1)
  1. CAMPTOSAR [Suspect]
     Dosage: 170 MG (125 MG/M2, INTRAVENOUS)
     Route: 042

REACTIONS (1)
  - ANGIONEUROTIC OEDEMA [None]
